FAERS Safety Report 8389574-6 (Version None)
Quarter: 2012Q2

REPORT INFORMATION
  Report Type: 
  Country: None (occurrence: None)
  Receive Date: 20120528
  Receipt Date: 20120522
  Transmission Date: 20120825
  Serious: Yes (Other)
  Sender: FDA-Public Use
  Company Number: PHHY2012MX045159

PATIENT
  Sex: Male

DRUGS (2)
  1. TENORMIN [Concomitant]
     Indication: HYPERTENSION
     Dosage: 1 DF, QD
     Dates: start: 20080501
  2. EXFORGE [Suspect]
     Indication: HYPERTENSION
     Dosage: 1 TABLET, DAILY
     Dates: start: 20120302

REACTIONS (1)
  - SPINAL FRACTURE [None]
